FAERS Safety Report 5422059-5 (Version None)
Quarter: 2007Q3

REPORT INFORMATION
  Report Type: 
  Country: None (occurrence: None)
  Receive Date: 20070822
  Receipt Date: 20070815
  Transmission Date: 20080115
  Serious: Yes (Death, Hospitalization)
  Sender: FDA-Public Use
  Company Number: TW-BRISTOL-MYERS SQUIBB COMPANY-13883491

PATIENT
  Age: 53 Year
  Sex: Male

DRUGS (3)
  1. TREXAN (ORION) [Suspect]
     Indication: PSORIASIS
     Dosage: TAKEN 5 MG (2.5 MG, 1 IN 12 H) BY ORAL ON 29-JUN-07 TO 30-JUN-07 (1 DAY).
     Route: 048
     Dates: start: 20070622, end: 20070623
  2. ACITRETIN [Concomitant]
     Indication: PSORIASIS
     Dates: start: 20070626
  3. CYCLOSPORINE [Concomitant]
     Dates: start: 20061201, end: 20070626

REACTIONS (2)
  - FEBRILE NEUTROPENIA [None]
  - PANCYTOPENIA [None]
